FAERS Safety Report 16204027 (Version 1)
Quarter: 2019Q2

REPORT INFORMATION
  Report Type: Spontaneous
  Country: US (occurrence: US)
  Receive Date: 20190416
  Receipt Date: 20190416
  Transmission Date: 20190711
  Serious: Yes (Hospitalization)
  Sender: FDA-Public Use
  Company Number: US-ASTRAZENECA-2019SE55507

PATIENT
  Age: 25395 Day
  Sex: Male
  Weight: 113.4 kg

DRUGS (3)
  1. MORPHINE [Concomitant]
     Active Substance: MORPHINE
     Indication: SPINAL PAIN
     Dosage: 10.0MG AS REQUIRED
     Route: 048
     Dates: start: 2017
  2. MOVANTIK [Suspect]
     Active Substance: NALOXEGOL OXALATE
     Indication: CONSTIPATION
     Route: 048
     Dates: start: 201902
  3. HYDROCODONE [Concomitant]
     Active Substance: HYDROCODONE
     Indication: SPINAL PAIN
     Route: 048
     Dates: start: 2017

REACTIONS (7)
  - Spinal compression fracture [Unknown]
  - Respiration abnormal [Unknown]
  - Eating disorder [Unknown]
  - Feeling abnormal [Unknown]
  - Pain [Unknown]
  - Constipation [Unknown]
  - Thinking abnormal [Unknown]

NARRATIVE: CASE EVENT DATE: 20190404
